FAERS Safety Report 4703409-1 (Version None)
Quarter: 2005Q2

REPORT INFORMATION
  Report Type: 
  Country: None (occurrence: None)
  Receive Date: 20050629
  Receipt Date: 20050623
  Transmission Date: 20051028
  Serious: Yes (Death, Hospitalization)
  Sender: FDA-Public Use
  Company Number: A500753310/WAES0506USA02491

PATIENT
  Age: 62 Year
  Sex: Female

DRUGS (1)
  1. MYOCHRYSINE [Suspect]

REACTIONS (19)
  - AMMONIA INCREASED [None]
  - ASCITES [None]
  - AUTOIMMUNE HEPATITIS [None]
  - BLOOD CHOLESTEROL INCREASED [None]
  - CACHEXIA [None]
  - CHRONIC HEPATITIS [None]
  - COLITIS [None]
  - FELTY'S SYNDROME [None]
  - HEPATIC ENCEPHALOPATHY [None]
  - HEPATIC FAILURE [None]
  - HEPATIC FIBROSIS [None]
  - HEPATIC NECROSIS [None]
  - HYPOALBUMINAEMIA [None]
  - HYPOPROTEINAEMIA [None]
  - PANCYTOPENIA [None]
  - PITTING OEDEMA [None]
  - PNEUMONIA BACTERIAL [None]
  - STAPHYLOCOCCAL INFECTION [None]
  - VARICES OESOPHAGEAL [None]
